FAERS Safety Report 25590477 (Version 1)
Quarter: 2025Q3

REPORT INFORMATION
  Report Type: Spontaneous
  Country: EU (occurrence: EU)
  Receive Date: 20250722
  Receipt Date: 20250722
  Transmission Date: 20251021
  Serious: Yes (Other)
  Sender: MERCK SHARP & DOHME LLC
  Company Number: None

PATIENT
  Age: 81 Year
  Sex: Male
  Weight: 79 kg

DRUGS (2)
  1. KEYTRUDA [Suspect]
     Active Substance: PEMBROLIZUMAB
     Indication: Bladder cancer
     Route: 042
     Dates: start: 20250417, end: 20250606
  2. PADCEV [Suspect]
     Active Substance: ENFORTUMAB VEDOTIN-EJFV
     Indication: Bladder cancer
     Route: 042
     Dates: start: 20250417, end: 20250606

REACTIONS (3)
  - Weight decreased [Unknown]
  - Skin toxicity [Unknown]
  - Asthenia [Unknown]

NARRATIVE: CASE EVENT DATE: 20250512
